FAERS Safety Report 16119782 (Version 2)
Quarter: 2019Q2

REPORT INFORMATION
  Report Type: Report from Study
  Country: US (occurrence: US)
  Receive Date: 20190326
  Receipt Date: 20190418
  Transmission Date: 20190711
  Serious: Yes (Hospitalization)
  Sender: FDA-Public Use
  Company Number: US-BAUSCH-BL-2019-008949

PATIENT
  Sex: Male

DRUGS (1)
  1. XIFAXAN [Suspect]
     Active Substance: RIFAXIMIN
     Indication: HEPATIC CIRRHOSIS
     Dosage: WHILE IN HOSPITAL
     Route: 048
     Dates: start: 201902, end: 20190315

REACTIONS (5)
  - Inability to afford medication [Unknown]
  - Pain [Not Recovered/Not Resolved]
  - Therapy cessation [Unknown]
  - Product supply issue [Unknown]
  - Hospitalisation [Not Recovered/Not Resolved]

NARRATIVE: CASE EVENT DATE: 2019
